FAERS Safety Report 9862306 (Version 1)
Quarter: 2014Q1

REPORT INFORMATION
  Report Type: Spontaneous
  Country: US (occurrence: US)
  Receive Date: 20140203
  Receipt Date: 20140203
  Transmission Date: 20141002
  Serious: Yes (Hospitalization)
  Sender: FDA-Public Use
  Company Number: US-BAYER-2014-017040

PATIENT
  Age: 20 Year
  Sex: Female
  Weight: 63.04 kg

DRUGS (3)
  1. YAZ [Suspect]
  2. YASMIN [Suspect]
  3. OCELLA [Suspect]

REACTIONS (2)
  - Deep vein thrombosis [None]
  - Pulmonary embolism [None]
